FAERS Safety Report 19028014 (Version 1)
Quarter: 2021Q1

REPORT INFORMATION
  Report Type: Spontaneous
  Country: US (occurrence: US)
  Receive Date: 20210318
  Receipt Date: 20210318
  Transmission Date: 20210420
  Serious: No
  Sender: FDA-Public Use
  Company Number: US-CATALYST PHARMACEUTICALS, INC-2021CAT00043

PATIENT
  Age: 69 Year
  Sex: Male
  Weight: 55.79 kg

DRUGS (10)
  1. FIRDAPSE [Suspect]
     Active Substance: AMIFAMPRIDINE PHOSPHATE
     Dosage: 10 MG, 1X/DAY IN THE AFTERNOON
     Dates: start: 20210131
  2. METFORMIN [Concomitant]
     Active Substance: METFORMIN HYDROCHLORIDE
  3. ROSUVASTATIN. [Concomitant]
     Active Substance: ROSUVASTATIN
  4. VITAMIN B12 [Concomitant]
     Active Substance: CYANOCOBALAMIN
  5. FIRDAPSE [Suspect]
     Active Substance: AMIFAMPRIDINE PHOSPHATE
     Indication: MYASTHENIC SYNDROME
     Dosage: UNK
     Dates: start: 202010
  6. ATENOLOL. [Concomitant]
     Active Substance: ATENOLOL
  7. CRANBERRY. [Concomitant]
     Active Substance: CRANBERRY
  8. FIRDAPSE [Suspect]
     Active Substance: AMIFAMPRIDINE PHOSPHATE
     Dosage: 15 MG, 2X/DAY IN THE MORNING AND IN THE EVENING
     Dates: start: 20210131
  9. UNSPECIFIED MEDICATION THAT STARTS WITH AN ^A^ [Concomitant]
  10. FISH OIL [Concomitant]
     Active Substance: FISH OIL

REACTIONS (1)
  - Diarrhoea [Not Recovered/Not Resolved]

NARRATIVE: CASE EVENT DATE: 20210201
